FAERS Safety Report 5312016-1 (Version None)
Quarter: 2007Q2

REPORT INFORMATION
  Report Type: 
  Country: None (occurrence: None)
  Receive Date: 20070430
  Receipt Date: 20060818
  Transmission Date: 20071010
  Serious: Yes (Other)
  Sender: FDA-Public Use
  Company Number: 2006UW10487

PATIENT
  Age: 64 Year
  Sex: Male
  Weight: 90.7 kg

DRUGS (3)
  1. NEXIUM [Suspect]
     Indication: GASTROOESOPHAGEAL REFLUX DISEASE
     Route: 048
  2. NEXIUM [Suspect]
     Indication: DUODENAL ULCER
     Route: 048
  3. DIAZEPAM [Concomitant]
     Route: 048

REACTIONS (2)
  - PAIN IN EXTREMITY [None]
  - PLATELET COUNT DECREASED [None]
